FAERS Safety Report 4867713-9 (Version None)
Quarter: 2005Q4

REPORT INFORMATION
  Report Type: 
  Country: None (occurrence: None)
  Receive Date: 20051227
  Receipt Date: 20051227
  Transmission Date: 20060501
  Serious: Yes (Disabling, Other)
  Sender: FDA-Public Use
  Company Number: None

PATIENT
  Age: 71 Year
  Sex: Male
  Weight: 74.8435 kg

DRUGS (2)
  1. AMIODARONE HCL [Suspect]
     Indication: ARRHYTHMIA
     Dosage: 400 MG  8 MO
     Dates: start: 20030423
  2. AMIODARONE HCL [Suspect]
     Dosage: 200 MG
     Dates: start: 20040114, end: 20050103

REACTIONS (8)
  - CHRONIC SINUSITIS [None]
  - DRUG TOXICITY [None]
  - EMPHYSEMA [None]
  - INTERSTITIAL LUNG DISEASE [None]
  - PULMONARY FIBROSIS [None]
  - RESTRICTIVE PULMONARY DISEASE [None]
  - SOMNOLENCE [None]
  - THYROID DISORDER [None]
